FAERS Safety Report 8544538 (Version 2)
Quarter: 2013Q1

REPORT INFORMATION
  Report Type: Spontaneous
  Country: US (occurrence: US)
  Receive Date: 20120503
  Receipt Date: 20130218
  Transmission Date: 20140127
  Serious: Yes (Hospitalization, Disabling, Other)
  Sender: FDA-Public Use
  Company Number: US-ROCHE-1004381

PATIENT
  Age: 68 Year
  Sex: Female
  Weight: 55.39 kg

DRUGS (1)
  1. BONIVA [Suspect]
     Indication: OSTEOPENIA
     Route: 048
     Dates: start: 2008

REACTIONS (1)
  - Femur fracture [Recovered/Resolved]
